FAERS Safety Report 6153502-4 (Version None)
Quarter: 2009Q2

REPORT INFORMATION
  Report Type: 
  Country: None (occurrence: None)
  Receive Date: 20090413
  Receipt Date: 20090406
  Transmission Date: 20091009
  Serious: Yes (Other)
  Sender: FDA-Public Use
  Company Number: PHHY2009DE13197

PATIENT
  Sex: Female

DRUGS (6)
  1. RASILEZ [Suspect]
     Indication: HYPERTENSION
     Dosage: 150 MG, BID
     Dates: start: 20090402, end: 20090406
  2. RASILEZ [Suspect]
     Dosage: 225 MG, BID
     Dates: start: 20090406
  3. HYDROCHLOROTHIAZIDE [Concomitant]
     Indication: HYPERTENSION
     Dosage: 12.5 MG/DAY
  4. VOTUM /ARG/ [Concomitant]
     Indication: HYPERTENSION
     Dosage: 0.5 DF, BID
  5. BRISERIN N [Concomitant]
     Indication: HYPERTENSION
     Dosage: 1 DF, QD
  6. CARVEDILOL [Concomitant]
     Indication: HYPERTENSION
     Dosage: 12.5 DF, BID

REACTIONS (1)
  - BLOOD PRESSURE SYSTOLIC INCREASED [None]
